FAERS Safety Report 6524715-4 (Version None)
Quarter: 2010Q1

REPORT INFORMATION
  Report Type: 
  Country: None (occurrence: None)
  Receive Date: 20100104
  Receipt Date: 20091223
  Transmission Date: 20100710
  Serious: Yes (Other)
  Sender: FDA-Public Use
  Company Number: US-SANOFI-AVENTIS-2009SA002689

PATIENT
  Age: 79 Year
  Sex: Female
  Weight: 63.6 kg

DRUGS (12)
  1. MULTAQ [Suspect]
     Indication: ATRIAL FIBRILLATION
     Route: 048
     Dates: start: 20091028, end: 20091102
  2. METOPROLOL TARTRATE [Concomitant]
     Route: 065
  3. RYTHMOL [Concomitant]
     Route: 048
  4. COLCHICINE [Concomitant]
     Route: 048
  5. ADVAIR DISKUS 100/50 [Concomitant]
  6. LASIX [Concomitant]
  7. NEXIUM /UNK/ [Concomitant]
  8. SYNTHROID [Concomitant]
  9. KLOR-CON [Concomitant]
  10. PREMARIN [Concomitant]
  11. XANAX [Concomitant]
  12. PRIMIDONE [Concomitant]

REACTIONS (1)
  - OROPHARYNGEAL SWELLING [None]
